FAERS Safety Report 4299630-X (Version None)
Quarter: 2004Q1

REPORT INFORMATION
  Report Type: 
  Country: None (occurrence: None)
  Receive Date: 20040217
  Receipt Date: 20040211
  Transmission Date: 20041129
  Serious: Yes (Life-Threatening, Hospitalization, Other)
  Sender: FDA-Public Use
  Company Number: 200410450GDS

PATIENT
  Sex: Male

DRUGS (4)
  1. AVELOX [Suspect]
     Indication: PYREXIA
     Dosage: 400 MG, TOTAL DAILY, ORAL
     Route: 048
     Dates: start: 20040130, end: 20040202
  2. GLUCOPHAGE [Concomitant]
  3. AUGMENTIN [Concomitant]
  4. MANY OTHER UNSPECIFIED MEDICATIONS [Concomitant]

REACTIONS (2)
  - HEPATIC FAILURE [None]
  - RIGHT VENTRICULAR FAILURE [None]
